FAERS Safety Report 4542678-8 (Version None)
Quarter: 2004Q4

REPORT INFORMATION
  Report Type: 
  Country: None (occurrence: None)
  Receive Date: 20041223
  Receipt Date: 20040929
  Transmission Date: 20050328
  Serious: No
  Sender: FDA-Public Use
  Company Number: US-JNJFOC-20041000736

PATIENT
  Age: 26 Year
  Sex: Female
  Weight: 56.6996 kg

DRUGS (2)
  1. ORTHO EVRA [Suspect]
     Indication: CONTRACEPTION
     Dosage: 1 DOSE (S), 3 IN 4 WEEK, TRANSDERMAL
     Route: 062
     Dates: start: 20040903
  2. FIBER PILLS (POLYCARBOPHIL CALCIUM) [Concomitant]

REACTIONS (9)
  - ABDOMINAL PAIN [None]
  - BREAST TENDERNESS [None]
  - CONSTIPATION [None]
  - DIARRHOEA [None]
  - EAR INFECTION [None]
  - HEADACHE [None]
  - MENSTRUAL DISORDER [None]
  - NASAL CONGESTION [None]
  - PYREXIA [None]
